FAERS Safety Report 10283742 (Version 1)
Quarter: 2014Q3

REPORT INFORMATION
  Report Type: Spontaneous
  Country: BR (occurrence: BR)
  Receive Date: 20140708
  Receipt Date: 20140708
  Transmission Date: 20150326
  Serious: Yes (Hospitalization)
  Sender: FDA-Public Use
  Company Number: BR-PFIZER INC-2014183199

PATIENT
  Age: 67 Year
  Sex: Female
  Weight: 49 kg

DRUGS (2)
  1. SUTENT [Suspect]
     Active Substance: SUNITINIB MALATE
     Indication: RENAL CELL CARCINOMA
     Dosage: 50 MG, CYCLIC (2 PER 1)
     Route: 048
     Dates: start: 20120402
  2. CALCIUM [Concomitant]
     Active Substance: CALCIUM
     Dosage: AS AN ^^APPLICATION^^
     Route: 048

REACTIONS (4)
  - Vomiting [Unknown]
  - Dysentery [Unknown]
  - Diarrhoea [Unknown]
  - Weight decreased [Unknown]

NARRATIVE: CASE EVENT DATE: 20140629
